FAERS Safety Report 13789189 (Version 1)
Quarter: 2017Q3

REPORT INFORMATION
  Report Type: Spontaneous
  Country: US (occurrence: US)
  Receive Date: 20170725
  Receipt Date: 20170725
  Transmission Date: 20171127
  Serious: Yes (Hospitalization, Other)
  Sender: FDA-Public Use
  Company Number: US-CMP PHARMA-2017CMP00020

PATIENT

DRUGS (4)
  1. RIFAPENTINE [Concomitant]
     Active Substance: RIFAPENTINE
     Dosage: (ON DAYS 5, 12, AND 19 OF STUDY PARTICIPATION)UNK UNK, 1X/WEEK
     Route: 065
  2. ISONIAZID. [Suspect]
     Active Substance: ISONIAZID
     Dosage: UNK, 1X/WEEK (ADMINISTERED WEEKLY ON DAYS 5, 12, AND 19 OF STUDY PARTICIPATION)
     Route: 065
  3. DOULTEGRAVIR [Concomitant]
     Dosage: 50 MG, 1X/DAY
     Route: 065
  4. PYRIDOXINE [Concomitant]
     Active Substance: PYRIDOXINE
     Dosage: (ON DAYS 5, 12, AND 19 OF STUDY PARTICIPATION)50 MG, 1X/WEEK
     Route: 065

REACTIONS (4)
  - Lymphocyte count decreased [Unknown]
  - Hepatotoxicity [Unknown]
  - Orthostatic hypotension [Recovered/Resolved]
  - Influenza like illness [Recovered/Resolved]
